FAERS Safety Report 24162289 (Version 1)
Quarter: 2024Q3

REPORT INFORMATION
  Report Type: Spontaneous
  Country: US (occurrence: None)
  Receive Date: 20240731
  Receipt Date: 20240731
  Transmission Date: 20241017
  Serious: Yes (Disabling)
  Sender: Public
  Company Number: None

PATIENT
  Age: 43 Year
  Sex: Female
  Weight: 57.6 kg

DRUGS (4)
  1. CLARAVIS [Suspect]
     Active Substance: ISOTRETINOIN
     Indication: Acne cystic
     Dosage: 1 CAPSULE TWICE A DAY ORAL ?
     Route: 048
     Dates: start: 20240125, end: 20240520
  2. PROBIOTICS NOS [Concomitant]
     Active Substance: PROBIOTICS NOS
  3. SYSTANE ULTRA LUBRICANT [Concomitant]
  4. SYTANE NIGHT  GEL [Concomitant]

REACTIONS (12)
  - Tinnitus [None]
  - Vertigo [None]
  - Dizziness [None]
  - Motion sickness [None]
  - Ear discomfort [None]
  - Ear pain [None]
  - Pain in jaw [None]
  - Disturbance in attention [None]
  - Insomnia [None]
  - Poor quality sleep [None]
  - Anxiety [None]
  - Quality of life decreased [None]

NARRATIVE: CASE EVENT DATE: 20240125
